FAERS Safety Report 5600832-8 (Version None)
Quarter: 2008Q1

REPORT INFORMATION
  Report Type: 
  Country: None (occurrence: None)
  Receive Date: 20080123
  Receipt Date: 20080115
  Transmission Date: 20080703
  Serious: Yes (Other)
  Sender: FDA-Public Use
  Company Number: DE-PFIZER INC-2008005690

PATIENT
  Sex: Male

DRUGS (2)
  1. GENOTROPIN [Suspect]
     Indication: FOETAL GROWTH RETARDATION
     Route: 058
     Dates: start: 20060131, end: 20060301
  2. GENOTROPIN [Suspect]
     Route: 058
     Dates: start: 20060601, end: 20061107

REACTIONS (1)
  - NEURILEMMOMA [None]
